FAERS Safety Report 8367159-5 (Version None)
Quarter: 2012Q1

REPORT INFORMATION
  Report Type: 
  Country: None (occurrence: None)
  Receive Date: 20120323
  Receipt Date: 20110818
  Transmission Date: 20120608
  Serious: Yes (Other)
  Sender: FDA-Public Use
  Company Number: 163-21880-11073382

PATIENT
  Age: 70 Year
  Sex: Female
  Weight: 63.9572 kg

DRUGS (2)
  1. REVLIMID [Suspect]
     Indication: MULTIPLE MYELOMA
     Dosage: 25 MG, DAILY ON D1-21, PO
     Route: 048
     Dates: start: 20110502, end: 20110727
  2. DEXAMETHASONE [Concomitant]

REACTIONS (1)
  - PANCYTOPENIA [None]
